FAERS Safety Report 16046441 (Version 3)
Quarter: 2019Q2

REPORT INFORMATION
  Report Type: Report from Study
  Country: JO (occurrence: JO)
  Receive Date: 20190307
  Receipt Date: 20190517
  Transmission Date: 20190711
  Serious: Yes (Life-Threatening, Hospitalization, Other)
  Sender: FDA-Public Use
  Company Number: PHHY2019JO048574

PATIENT
  Age: 42 Year
  Sex: Female
  Weight: 80 kg

DRUGS (2)
  1. DABRAFENIB [Suspect]
     Active Substance: DABRAFENIB
     Indication: MALIGNANT MELANOMA
     Dosage: 150 MG, BID
     Route: 048
     Dates: start: 20181129, end: 20190120
  2. TRAMETINIB [Suspect]
     Active Substance: TRAMETINIB
     Indication: MALIGNANT MELANOMA
     Dosage: 2 MG, QD
     Route: 048
     Dates: start: 20181129, end: 20190120

REACTIONS (16)
  - International normalised ratio increased [Recovered/Resolved]
  - Pulmonary haemorrhage [Recovered/Resolved]
  - Haemorrhagic diathesis [Recovered/Resolved]
  - Hepatosplenomegaly [Unknown]
  - Blood lactate dehydrogenase increased [Recovered/Resolved]
  - Erythema [Unknown]
  - Dyspnoea [Recovering/Resolving]
  - Serum ferritin increased [Recovered/Resolved]
  - Rash [Unknown]
  - Acute kidney injury [Recovered/Resolved]
  - Dyspnoea exertional [Unknown]
  - Productive cough [Unknown]
  - Gingival bleeding [Recovering/Resolving]
  - Increased appetite [Unknown]
  - Folliculitis [Unknown]
  - Haemophagocytic lymphohistiocytosis [Recovered/Resolved]

NARRATIVE: CASE EVENT DATE: 20190101
